FAERS Safety Report 5449227-0 (Version None)
Quarter: 2007Q3

REPORT INFORMATION
  Report Type: 
  Country: None (occurrence: None)
  Receive Date: 20070911
  Receipt Date: 20070906
  Transmission Date: 20080115
  Serious: Yes (Death, Hospitalization)
  Sender: FDA-Public Use
  Company Number: KE-GILEAD-2007-0013256

PATIENT
  Age: 46 Year
  Sex: Female
  Weight: 41.5 kg

DRUGS (5)
  1. TRUVADA [Suspect]
     Indication: HIV INFECTION
     Route: 048
     Dates: start: 20070625
  2. NEVIRAPINE [Suspect]
     Indication: HIV INFECTION
     Route: 048
     Dates: start: 20070625
  3. COTRIMOXAZOLE [Concomitant]
  4. PLASIL [Concomitant]
  5. FANSIDAR [Concomitant]

REACTIONS (1)
  - DEATH [None]
